FAERS Safety Report 6940690-2 (Version None)
Quarter: 2010Q3

REPORT INFORMATION
  Report Type: 
  Country: None (occurrence: None)
  Receive Date: 20100825
  Receipt Date: 20100816
  Transmission Date: 20110219
  Serious: Yes (Other)
  Sender: FDA-Public Use
  Company Number: DE-ROCHE-716610

PATIENT
  Age: 73 Year
  Sex: Male

DRUGS (1)
  1. ROFERON-A [Suspect]
     Indication: MALIGNANT MELANOMA STAGE II
     Dosage: DOSE: 3 MILLION IU
     Route: 058

REACTIONS (1)
  - LICHEN PLANUS [None]
